FAERS Safety Report 15932058 (Version 1)
Quarter: 2019Q1

REPORT INFORMATION
  Report Type: Spontaneous
  Country: US (occurrence: US)
  Receive Date: 20190207
  Receipt Date: 20190207
  Transmission Date: 20190417
  Serious: Yes (Other)
  Sender: FDA-Public Use
  Company Number: None

PATIENT
  Age: 52 Year
  Sex: Male
  Weight: 83.1 kg

DRUGS (8)
  1. PHENYLEPHRINE [Concomitant]
     Active Substance: PHENYLEPHRINE\PHENYLEPHRINE HYDROCHLORIDE
     Dates: start: 20190204, end: 20190204
  2. ROCURONIUM [Suspect]
     Active Substance: ROCURONIUM BROMIDE
     Indication: INDUCTION OF ANAESTHESIA
     Route: 042
     Dates: start: 20190204, end: 20190204
  3. FENTANYL. [Concomitant]
     Active Substance: FENTANYL
     Dates: start: 20190204, end: 20190204
  4. PROPOFOL. [Concomitant]
     Active Substance: PROPOFOL
     Dates: start: 20190204, end: 20190204
  5. LIDOCAINE. [Concomitant]
     Active Substance: LIDOCAINE
     Dates: start: 20190204, end: 20190204
  6. DEXAMETHASONE. [Concomitant]
     Active Substance: DEXAMETHASONE
     Dates: start: 20190204, end: 20190204
  7. CEFAZOLIN [Concomitant]
     Active Substance: CEFAZOLIN
     Dates: start: 20190204, end: 20190204
  8. KETAMINE [Concomitant]
     Active Substance: KETAMINE
     Dates: start: 20190204, end: 20190204

REACTIONS (2)
  - Drug ineffective [None]
  - Anaesthetic complication [None]

NARRATIVE: CASE EVENT DATE: 20190204
